FAERS Safety Report 23627409 (Version 1)
Quarter: 2024Q1

REPORT INFORMATION
  Report Type: Spontaneous
  Country: ES (occurrence: ES)
  Receive Date: 20240313
  Receipt Date: 20240313
  Transmission Date: 20240410
  Serious: Yes (Hospitalization)
  Sender: FDA-Public Use
  Company Number: None

PATIENT
  Age: 66 Year
  Sex: Female

DRUGS (6)
  1. ROSUVASTATIN [Suspect]
     Active Substance: ROSUVASTATIN
     Indication: Dyslipidaemia
     Dosage: ROSUVASTATINA (8215A)
     Route: 048
     Dates: start: 20230829, end: 20230919
  2. TUKYSA [Suspect]
     Active Substance: TUCATINIB
     Indication: Breast neoplasm
     Dosage: TUKYSA 150 MG FILM-COATED TABLETS, 84 TABLETS
     Route: 048
     Dates: start: 20230830, end: 20230926
  3. MIRTAZAPINE [Concomitant]
     Active Substance: MIRTAZAPINE
     Indication: Product used for unknown indication
     Dosage: MIRTAZAPINA (2704A)
     Route: 048
     Dates: start: 20170715, end: 20230926
  4. TRASTUZUMAB [Suspect]
     Active Substance: TRASTUZUMAB
     Indication: Breast neoplasm
     Dosage: TRASTUZUMAB (1168A)
     Route: 042
     Dates: start: 20230830, end: 20230919
  5. CAPECITABINE [Suspect]
     Active Substance: CAPECITABINE
     Indication: Breast neoplasm
     Dosage: CAPECITABINA (1224A)
     Route: 042
     Dates: start: 20230830, end: 20230919
  6. SULFAMETHOXAZOLE\TRIMETHOPRIM [Suspect]
     Active Substance: SULFAMETHOXAZOLE\TRIMETHOPRIM
     Indication: Product used for unknown indication
     Dosage: 160 MG/800 MG TABLETS, 20 TABLETS
     Route: 048
     Dates: start: 20230515, end: 20230926

REACTIONS (2)
  - Hepatocellular injury [Recovered/Resolved]
  - Hyperbilirubinaemia [Recovered/Resolved]

NARRATIVE: CASE EVENT DATE: 20230919
